FAERS Safety Report 11268902 (Version 1)
Quarter: 2015Q3

REPORT INFORMATION
  Report Type: Spontaneous
  Country: US (occurrence: None)
  Receive Date: 20150710
  Receipt Date: 20150710
  Transmission Date: 20151125
  Serious: Yes (Hospitalization)
  Sender: FDA-Public Use
  Company Number: HT-2015-795-0002 PR11788

PATIENT
  Age: 62 Year
  Sex: Male

DRUGS (1)
  1. LACTULOSE SOLUTION USP, 10 G/15 ML [Suspect]
     Active Substance: LACTULOSE

REACTIONS (2)
  - Ammonia increased [None]
  - Product substitution issue [None]
